FAERS Safety Report 8889020 (Version 4)
Quarter: 2013Q2

REPORT INFORMATION
  Report Type: Spontaneous
  Country: US (occurrence: US)
  Receive Date: 20121106
  Receipt Date: 20130516
  Transmission Date: 20140414
  Serious: Yes (Hospitalization, Other)
  Sender: FDA-Public Use
  Company Number: US-009507513-1211USA001652

PATIENT
  Sex: Female

DRUGS (4)
  1. FOSAMAX [Suspect]
     Indication: OSTEOPOROSIS
     Dosage: 70 MG, QW
     Route: 048
     Dates: start: 19971014, end: 20110421
  2. FOSAMAX [Suspect]
     Dosage: 10 MG, QD
     Route: 048
     Dates: start: 1993, end: 20110421
  3. FOSAMAX [Suspect]
     Indication: OSTEOPOROSIS
     Route: 048
  4. VITAMINS (UNSPECIFIED) [Concomitant]

REACTIONS (46)
  - Intramedullary rod insertion [Unknown]
  - Osteonecrosis [Unknown]
  - Pubis fracture [Recovered/Resolved]
  - Lobar pneumonia [Unknown]
  - Rib fracture [Unknown]
  - Skin cancer [Unknown]
  - Colostomy [Unknown]
  - Fall [Unknown]
  - Fall [Unknown]
  - Colectomy [Unknown]
  - Bursitis [Unknown]
  - Femur fracture [Recovering/Resolving]
  - Femur fracture [Unknown]
  - Osteoarthritis [Unknown]
  - Low turnover osteopathy [Unknown]
  - Osteopenia [Unknown]
  - Hyperlipidaemia [Unknown]
  - Peripheral vascular disorder [Unknown]
  - Thrombosis [Unknown]
  - Hypertension [Unknown]
  - Diverticulitis [Unknown]
  - Glaucoma [Unknown]
  - Osteoarthritis [Unknown]
  - Spondylolisthesis [Unknown]
  - Radiculitis lumbosacral [Unknown]
  - Anaemia [Unknown]
  - Escherichia urinary tract infection [Unknown]
  - Osteoarthritis [Unknown]
  - Spinal compression fracture [Unknown]
  - Cardiomegaly [Unknown]
  - Chronic obstructive pulmonary disease [Not Recovered/Not Resolved]
  - Red blood cell sedimentation rate increased [Unknown]
  - Vascular calcification [Unknown]
  - Uterine atrophy [Unknown]
  - Balance disorder [Unknown]
  - Head injury [Unknown]
  - Hepatic steatosis [Unknown]
  - Pulmonary mass [Unknown]
  - Arteriosclerosis coronary artery [Unknown]
  - Renal cyst [Unknown]
  - Hydrometra [Unknown]
  - Back pain [Unknown]
  - Asthenia [Unknown]
  - Gastritis [Unknown]
  - Arthralgia [Unknown]
  - Constipation [Unknown]
